FAERS Safety Report 4874167-5 (Version None)
Quarter: 2006Q1

REPORT INFORMATION
  Report Type: 
  Country: None (occurrence: None)
  Receive Date: 20060106
  Receipt Date: 20060104
  Transmission Date: 20060701
  Serious: Yes (Other)
  Sender: FDA-Public Use
  Company Number: NO-GLAXOSMITHKLINE-B0405571A

PATIENT
  Sex: Female

DRUGS (12)
  1. FLUTIDE [Suspect]
     Route: 065
     Dates: start: 20000101, end: 20020101
  2. FLUTIDE [Concomitant]
     Route: 055
  3. AIROMIR [Concomitant]
  4. NUELIN [Concomitant]
  5. PREDNISOLONE [Concomitant]
  6. VENTOLIN [Concomitant]
  7. ATROVENT [Concomitant]
  8. AEROBEC [Concomitant]
  9. SINGULAIR [Concomitant]
  10. CLARITIN [Concomitant]
  11. LIVOSTIN [Concomitant]
  12. LOMUDAL [Concomitant]

REACTIONS (1)
  - NASAL SEPTUM PERFORATION [None]
